FAERS Safety Report 5378343-7 (Version None)
Quarter: 2007Q3

REPORT INFORMATION
  Report Type: 
  Country: None (occurrence: None)
  Receive Date: 20070702
  Receipt Date: 20070622
  Transmission Date: 20080115
  Serious: Yes (Other)
  Sender: FDA-Public Use
  Company Number: MEDI-0005845

PATIENT
  Age: 7 Month
  Sex: Male

DRUGS (9)
  1. SYNAGIS [Suspect]
     Indication: ANTIVIRAL PROPHYLAXIS
     Dates: start: 20061129, end: 20061129
  2. FUROSEMIDE [Concomitant]
  3. CAPTOPRIL [Concomitant]
  4. LOPERAMIDE HCL [Concomitant]
  5. CODEINE SUL TAB [Concomitant]
  6. ENOXAPARIN SODIUM [Concomitant]
  7. ALFACALCIDOL              (ALFACALCIDOL) [Concomitant]
  8. CO-TRIMOXZOLE         (CO-TRIMOXAZOLE) [Concomitant]
  9. WARFARIN SODIUM [Concomitant]

REACTIONS (7)
  - CONTUSION [None]
  - INTERNATIONAL NORMALISED RATIO INCREASED [None]
  - NEUTROPENIA [None]
  - PETECHIAE [None]
  - PYREXIA [None]
  - RASH [None]
  - SUPRAVENTRICULAR EXTRASYSTOLES [None]
